FAERS Safety Report 6629625-X (Version None)
Quarter: 2010Q1

REPORT INFORMATION
  Report Type: 
  Country: None (occurrence: None)
  Receive Date: 20100311
  Receipt Date: 20100301
  Transmission Date: 20100710
  Serious: Yes (Other)
  Sender: FDA-Public Use
  Company Number: US-PFIZER INC-2010027022

PATIENT
  Sex: Female
  Weight: 85.714 kg

DRUGS (2)
  1. LYRICA [Suspect]
     Indication: HERPES ZOSTER
     Dosage: UNK
     Dates: start: 20080401, end: 20080501
  2. NEURONTIN [Suspect]
     Indication: HERPES ZOSTER
     Dosage: UNK
     Dates: start: 20080101, end: 20080101

REACTIONS (4)
  - ABASIA [None]
  - DYSSTASIA [None]
  - GRIP STRENGTH DECREASED [None]
  - MUSCULAR WEAKNESS [None]
